FAERS Safety Report 16210167 (Version 1)
Quarter: 2019Q2

REPORT INFORMATION
  Report Type: Report from Study
  Country: None (occurrence: GB)
  Receive Date: 20190417
  Receipt Date: 20190417
  Transmission Date: 20190711
  Serious: Yes (Other)
  Sender: FDA-Public Use
  Company Number: GB-ABBVIE-19K-167-2740765-00

PATIENT
  Age: 72 Year
  Sex: Female

DRUGS (2)
  1. HUMIRA [Suspect]
     Active Substance: ADALIMUMAB
     Indication: PRODUCT USED FOR UNKNOWN INDICATION
     Route: 058
  2. IMRALDI [Suspect]
     Active Substance: ADALIMUMAB
     Indication: PSORIASIS
     Dosage: STRENGTH: 04MG/0.8ML
     Route: 058

REACTIONS (13)
  - Localised infection [Recovered/Resolved]
  - Inflammation [Recovered/Resolved]
  - Skin discolouration [Recovered/Resolved]
  - Fatigue [Recovered/Resolved]
  - Condition aggravated [Recovered/Resolved]
  - Dyspnoea [Recovered/Resolved]
  - Rash pruritic [Recovered/Resolved]
  - Skin irritation [Recovered/Resolved]
  - Injection site pain [Recovered/Resolved]
  - Back pain [Recovered/Resolved]
  - Product substitution issue [Recovered/Resolved]
  - Erythema [Recovered/Resolved]
  - Joint swelling [Recovered/Resolved]

NARRATIVE: CASE EVENT DATE: 20190212
